FAERS Safety Report 21776072 (Version 1)
Quarter: 2022Q4

REPORT INFORMATION
  Report Type: Spontaneous
  Country: US (occurrence: US)
  Receive Date: 20221226
  Receipt Date: 20221226
  Transmission Date: 20230112
  Serious: No
  Sender: FDA-Public Use
  Company Number: US-MIGRATION_PFIZER-2022BHV002490

PATIENT
  Sex: Female

DRUGS (3)
  1. NURTEC ODT [Suspect]
     Active Substance: RIMEGEPANT SULFATE
     Indication: Migraine
     Dosage: 1 ORALLY DISINTEGRATING TABLET; PRESCRIBED AND FILLED ON 21-OCT-2021; PER PATIENT, I TRY HARD NOT TO
     Route: 060
     Dates: start: 2021
  2. NURTEC ODT [Suspect]
     Active Substance: RIMEGEPANT SULFATE
     Indication: Headache
  3. NITROUS OXIDE/LAUGHING GAS [Concomitant]
     Indication: Product used for unknown indication
     Route: 065

REACTIONS (4)
  - Fatigue [Recovered/Resolved]
  - Drug ineffective [Unknown]
  - Therapeutic product effect delayed [Unknown]
  - Nausea [Recovered/Resolved]
